FAERS Safety Report 6261639-4 (Version None)
Quarter: 2009Q3

REPORT INFORMATION
  Report Type: 
  Country: None (occurrence: None)
  Receive Date: 20090707
  Receipt Date: 20090707
  Transmission Date: 20100115
  Serious: No
  Sender: FDA-Public Use
  Company Number: None

PATIENT
  Age: 39 Year
  Sex: Female
  Weight: 68.0396 kg

DRUGS (2)
  1. HYDROMET [Suspect]
     Dosage: 2 TEASPOONS EVERY 12 HRS PO
     Route: 048
  2. . [Concomitant]

REACTIONS (8)
  - ABDOMINAL PAIN UPPER [None]
  - DIARRHOEA [None]
  - DIZZINESS [None]
  - EUPHORIC MOOD [None]
  - MOBILITY DECREASED [None]
  - NARCOTIC INTOXICATION [None]
  - SYNCOPE [None]
  - VERTIGO [None]
